FAERS Safety Report 11344163 (Version 1)
Quarter: 2015Q3

REPORT INFORMATION
  Report Type: Spontaneous
  Country: CN (occurrence: CN)
  Receive Date: 20150806
  Receipt Date: 20150806
  Transmission Date: 20151125
  Serious: Yes (Other)
  Sender: FDA-Public Use
  Company Number: CN-ASTRAZENECA-2015SE73889

PATIENT
  Age: 57 Year
  Sex: Male

DRUGS (6)
  1. GEFITINIB [Suspect]
     Active Substance: GEFITINIB
     Indication: NON-SMALL CELL LUNG CANCER
     Route: 048
     Dates: start: 20131104
  2. GEFITINIB [Suspect]
     Active Substance: GEFITINIB
     Indication: NEOPLASM
     Route: 048
  3. GEFITINIB [Suspect]
     Active Substance: GEFITINIB
     Indication: METASTATIC NEOPLASM
     Route: 048
     Dates: start: 20131104
  4. GEFITINIB [Suspect]
     Active Substance: GEFITINIB
     Indication: NEOPLASM
     Route: 048
     Dates: start: 20131104
  5. GEFITINIB [Suspect]
     Active Substance: GEFITINIB
     Indication: NON-SMALL CELL LUNG CANCER
     Route: 048
  6. GEFITINIB [Suspect]
     Active Substance: GEFITINIB
     Indication: METASTATIC NEOPLASM
     Route: 048

REACTIONS (1)
  - Intestinal obstruction [Recovered/Resolved]
